FAERS Safety Report 6656812-7 (Version None)
Quarter: 2010Q1

REPORT INFORMATION
  Report Type: 
  Country: None (occurrence: None)
  Receive Date: 20100325
  Receipt Date: 20100316
  Transmission Date: 20100710
  Serious: Yes (Hospitalization)
  Sender: FDA-Public Use
  Company Number: ALL1-2010-01501

PATIENT
  Age: 51 Year
  Sex: Male
  Weight: 112.9 kg

DRUGS (2)
  1. FOSRENOL [Suspect]
     Indication: HYPERPHOSPHATAEMIA
     Dosage: MG, WITH MEALS, ORAL
     Route: 048
     Dates: start: 20100101
  2. FOSRENOL [Suspect]
     Indication: RENAL FAILURE
     Dosage: MG, WITH MEALS, ORAL
     Route: 048
     Dates: start: 20100101

REACTIONS (4)
  - DIARRHOEA [None]
  - HEADACHE [None]
  - HYPOTENSION [None]
  - PNEUMONIA [None]
